FAERS Safety Report 17372609 (Version 1)
Quarter: 2020Q1

REPORT INFORMATION
  Report Type: Spontaneous
  Country: US (occurrence: US)
  Receive Date: 20200205
  Receipt Date: 20200205
  Transmission Date: 20200409
  Serious: Yes (Hospitalization, Other)
  Sender: FDA-Public Use
  Company Number: US-BRISTOL-MYERS SQUIBB COMPANY-BMS-2020-008495

PATIENT
  Sex: Male
  Weight: 80.29 kg

DRUGS (1)
  1. ELIQUIS [Suspect]
     Active Substance: APIXABAN
     Indication: EMBOLISM VENOUS
     Dosage: 2.5 MILLIGRAM, QD
     Route: 048
     Dates: start: 201912

REACTIONS (5)
  - Contusion [Unknown]
  - Paraesthesia [Unknown]
  - Weight fluctuation [Unknown]
  - Skin discolouration [Unknown]
  - Off label use [Unknown]
